FAERS Safety Report 13328964 (Version 1)
Quarter: 2017Q1

REPORT INFORMATION
  Report Type: Other
  Country: US (occurrence: US)
  Receive Date: 20170313
  Receipt Date: 20170313
  Transmission Date: 20170428
  Serious: Yes (Other)
  Sender: FDA-Public Use
  Company Number: US-HETERO LABS LTD-1064171

PATIENT
  Sex: Male

DRUGS (6)
  1. ATORVASTATIN [Suspect]
     Active Substance: ATORVASTATIN
     Route: 065
  2. NIACIN. [Suspect]
     Active Substance: NIACIN
     Route: 065
  3. EZETIMIBE. [Suspect]
     Active Substance: EZETIMIBE
     Route: 065
  4. SIMVASTATIN. [Suspect]
     Active Substance: SIMVASTATIN
     Indication: PRODUCT USED FOR UNKNOWN INDICATION
     Route: 065
  5. ROSUVASTATIN. [Suspect]
     Active Substance: ROSUVASTATIN
     Route: 065
  6. LOVASTATIN. [Suspect]
     Active Substance: LOVASTATIN
     Route: 065

REACTIONS (6)
  - Arthritis [Unknown]
  - Diabetic neuropathy [Unknown]
  - Myalgia [Unknown]
  - Mitochondrial myopathy [Unknown]
  - Muscular weakness [Unknown]
  - Depression [Unknown]
